FAERS Safety Report 9237229 (Version 2)
Quarter: 2013Q2

REPORT INFORMATION
  Report Type: Spontaneous
  Country: FR (occurrence: FR)
  Receive Date: 20130417
  Receipt Date: 20130503
  Transmission Date: 20140414
  Serious: Yes (Other)
  Sender: FDA-Public Use
  Company Number: FR-WATSON-2013-06341

PATIENT
  Age: 28 Year
  Sex: Male

DRUGS (5)
  1. LOXAPINE (WATSON LABORATORIES) [Suspect]
     Indication: SCHIZOPHRENIA
     Dosage: 300 MG, DAILY
     Route: 065
  2. LOXAPINE (WATSON LABORATORIES) [Suspect]
     Dosage: 50 MG, FOUR AMPOULES
     Route: 051
  3. LOXAPINE (WATSON LABORATORIES) [Suspect]
     Dosage: 450 MG, DAILY
     Route: 065
  4. LOXAPINE (WATSON LABORATORIES) [Suspect]
     Dosage: 700 MG, DAILY
     Route: 065
  5. CLONAZEPAM [Concomitant]
     Indication: SCHIZOPHRENIA
     Dosage: 6 MG, DAILY
     Route: 065

REACTIONS (6)
  - Bradykinesia [Recovered/Resolved]
  - Dysphagia [Recovered/Resolved]
  - Condition aggravated [Recovered/Resolved]
  - Choking [Recovered/Resolved]
  - Regurgitation [Recovered/Resolved]
  - Sedation [Unknown]
